FAERS Safety Report 16496479 (Version 1)
Quarter: 2019Q2

REPORT INFORMATION
  Report Type: Spontaneous
  Country: US (occurrence: US)
  Receive Date: 20190628
  Receipt Date: 20190628
  Transmission Date: 20190711
  Serious: Yes (Other)
  Sender: FDA-Public Use
  Company Number: US-PFIZER INC-2019266197

PATIENT
  Age: 61 Year
  Sex: Female

DRUGS (2)
  1. LYRICA [Suspect]
     Active Substance: PREGABALIN
     Indication: FIBROMYALGIA
     Dosage: 4 DF, DAILY
  2. LYRICA [Suspect]
     Active Substance: PREGABALIN
     Dosage: 4 DF, 2X/DAY

REACTIONS (14)
  - Arrhythmia [Not Recovered/Not Resolved]
  - Fatigue [Recovering/Resolving]
  - Hypotension [Recovering/Resolving]
  - Malaise [Recovering/Resolving]
  - Pallor [Recovering/Resolving]
  - Dyspnoea exertional [Recovering/Resolving]
  - Pain [Recovering/Resolving]
  - Joint swelling [Recovering/Resolving]
  - Initial insomnia [Unknown]
  - Chest discomfort [Recovering/Resolving]
  - Intentional product misuse [Unknown]
  - Palpitations [Not Recovered/Not Resolved]
  - Peripheral swelling [Recovering/Resolving]
  - Heart rate decreased [Recovering/Resolving]

NARRATIVE: CASE EVENT DATE: 2016
